FAERS Safety Report 4315446-X (Version None)
Quarter: 2004Q1

REPORT INFORMATION
  Report Type: 
  Country: None (occurrence: None)
  Receive Date: 20040309
  Receipt Date: 20040226
  Transmission Date: 20041129
  Serious: Yes (Hospitalization)
  Sender: FDA-Public Use
  Company Number: 000775

PATIENT
  Age: 59 Year
  Sex: Male
  Weight: 100.4 kg

DRUGS (11)
  1. ZEVALIN [Suspect]
     Indication: NON-HODGKIN'S LYMPHOMA
     Dosage: SINGLE, RITUXAN DOSE 1, INTRAVENOUS
     Route: 042
     Dates: start: 20031001, end: 20031001
  2. ZEVALIN [Suspect]
     Indication: NON-HODGKIN'S LYMPHOMA
     Dosage: SINGLE RITUXAN DOSE 1, INTRAVENOUS
     Route: 042
     Dates: start: 20031001, end: 20031001
  3. ZEVALIN [Suspect]
     Dosage: SINGLE, RITUXAN DOSE 2, INTRAVENOUS
     Route: 042
     Dates: start: 20031028, end: 20031028
  4. ZEVALIN [Suspect]
     Dosage: 32 MCI, SINGLE,Y-[90] ZEVALIN, INTRAVENOUS
     Route: 042
     Dates: start: 20031028, end: 20031028
  5. PRILOSEC [Concomitant]
  6. LASIX [Concomitant]
  7. SIMVASTATIN [Concomitant]
  8. DIGOXIN [Concomitant]
  9. CAPTOPRIL [Concomitant]
  10. ASPIRIN [Concomitant]
  11. MAGNESIUM OXIDE [Concomitant]

REACTIONS (10)
  - BUNDLE BRANCH BLOCK LEFT [None]
  - CARDIAC FAILURE CONGESTIVE [None]
  - CARDIOMYOPATHY [None]
  - CHRONIC OBSTRUCTIVE AIRWAYS DISEASE [None]
  - HYPERLIPIDAEMIA [None]
  - LEFT VENTRICULAR FAILURE [None]
  - MITRAL VALVE INCOMPETENCE [None]
  - PERICARDIAL EFFUSION [None]
  - PULMONARY HYPERTENSION [None]
  - RIGHT VENTRICULAR FAILURE [None]
